FAERS Safety Report 10061760 (Version 1)
Quarter: 2014Q2

REPORT INFORMATION
  Report Type: Spontaneous
  Country: US (occurrence: None)
  Receive Date: 20140404
  Receipt Date: 20140404
  Transmission Date: 20141212
  Serious: Yes (Other)
  Sender: FDA-Public Use
  Company Number: None

PATIENT
  Age: 49 Year
  Sex: Female
  Weight: 68.95 kg

DRUGS (1)
  1. CLINDAMYCIN [Suspect]
     Indication: ENDODONTIC PROCEDURE
     Dosage: 1  THREE TIMES DAILY TAKEN BY MOUTH
     Route: 048
     Dates: start: 20140312, end: 20140314

REACTIONS (4)
  - Rash [None]
  - Tremor [None]
  - Intra-abdominal haemorrhage [None]
  - Dyspnoea [None]
